FAERS Safety Report 7564314-9 (Version None)
Quarter: 2011Q2

REPORT INFORMATION
  Report Type: 
  Country: None (occurrence: None)
  Receive Date: 20110622
  Receipt Date: 20110520
  Transmission Date: 20111010
  Serious: No
  Sender: FDA-Public Use
  Company Number: US-ALLERGAN-1106936US

PATIENT
  Age: 74 Year
  Sex: Female

DRUGS (1)
  1. LUMIGAN [Suspect]
     Indication: GLAUCOMA
     Dosage: 2 GTT, QHS
     Route: 047
     Dates: start: 20110518, end: 20110518

REACTIONS (3)
  - PHOTOPHOBIA [None]
  - EYELID PAIN [None]
  - EYE PAIN [None]
